FAERS Safety Report 5417137-0 (Version None)
Quarter: 2007Q3

REPORT INFORMATION
  Report Type: 
  Country: None (occurrence: None)
  Receive Date: 20070814
  Receipt Date: 20070808
  Transmission Date: 20080115
  Serious: Yes (Other)
  Sender: FDA-Public Use
  Company Number: JPI-P-001836

PATIENT
  Age: 68 Year
  Sex: Female

DRUGS (5)
  1. XYREM [Suspect]
     Indication: INSOMNIA
     Dosage: 5 GM (2.5 GM 2 IN 1 D), ORAL
     Route: 048
     Dates: start: 20070701
  2. WARFARIN SODIUM [Concomitant]
  3. AMLODIPINE BESYLATE (AMLODIPINE BESILATE) [Concomitant]
  4. LORAZEPAM [Concomitant]
  5. HYDROCODONE W/ACETAMINOPHEN (VICODIN) [Concomitant]

REACTIONS (2)
  - CONDITION AGGRAVATED [None]
  - JUGULAR VEIN THROMBOSIS [None]
